FAERS Safety Report 8180195-7 (Version None)
Quarter: 2012Q1

REPORT INFORMATION
  Report Type: 
  Country: None (occurrence: None)
  Receive Date: 20120302
  Receipt Date: 20120228
  Transmission Date: 20120608
  Serious: Yes (Other)
  Sender: FDA-Public Use
  Company Number: FR-AMGEN-FRASP2012012748

PATIENT
  Age: 52 Year
  Sex: Male

DRUGS (5)
  1. CISPLATIN [Concomitant]
     Indication: TESTICULAR NEOPLASM
     Dosage: 25 MG, QD
     Dates: start: 20120105, end: 20120109
  2. NEULASTA [Suspect]
     Indication: CHEMOTHERAPY
     Dosage: 6 MG, ONE TIME DOSE
     Route: 058
     Dates: start: 20120110, end: 20120110
  3. BLEOMYCIN SULFATE [Concomitant]
     Indication: TESTICULAR NEOPLASM
     Dosage: 30 MG, UNK
  4. ETOPOSIDE [Concomitant]
     Indication: TESTICULAR NEOPLASM
     Dosage: 125 MG, UNK
     Dates: start: 20120105, end: 20120109
  5. SOLUPRED                           /00016201/ [Concomitant]
     Dosage: 40 MG, QD
     Dates: start: 20120105, end: 20120109

REACTIONS (1)
  - DRUG INEFFECTIVE [None]
